FAERS Safety Report 7513742-6 (Version None)
Quarter: 2011Q2

REPORT INFORMATION
  Report Type: 
  Country: None (occurrence: None)
  Receive Date: 20110531
  Receipt Date: 20110525
  Transmission Date: 20111010
  Serious: Yes (Other)
  Sender: FDA-Public Use
  Company Number: BR-PFIZER INC-2010116880

PATIENT
  Age: 45 Year
  Sex: Male
  Weight: 105 kg

DRUGS (3)
  1. ROXFLAN [Concomitant]
     Indication: HYPERTENSION
     Dosage: UNK
     Dates: start: 20060101
  2. CAVERJECT [Suspect]
     Indication: ERECTILE DYSFUNCTION
     Dosage: UNK
     Dates: start: 20070101
  3. CAVERJECT [Suspect]
     Dosage: UNK
     Route: 017
     Dates: start: 20081116, end: 20100909

REACTIONS (5)
  - APPLICATION SITE PAIN [None]
  - PAIN [None]
  - DRUG DEPENDENCE [None]
  - DRUG INEFFECTIVE [None]
  - APPLICATION SITE REACTION [None]
